FAERS Safety Report 15277796 (Version 1)
Quarter: 2018Q3

REPORT INFORMATION
  Report Type: Spontaneous
  Country: DE (occurrence: DE)
  Receive Date: 20180814
  Receipt Date: 20180814
  Transmission Date: 20181010
  Serious: Yes (Hospitalization, Other)
  Sender: FDA-Public Use
  Company Number: DE-ASTRAZENECA-2018SE99856

PATIENT
  Sex: Female

DRUGS (1)
  1. OLAPARIB. [Suspect]
     Active Substance: OLAPARIB
     Indication: BREAST CANCER METASTATIC
     Dosage: UNKNOWN DOSE
     Route: 048

REACTIONS (3)
  - Acute myeloid leukaemia [Unknown]
  - Off label use [Unknown]
  - Myelodysplastic syndrome [Unknown]
